FAERS Safety Report 20652554 (Version 1)
Quarter: 2022Q1

REPORT INFORMATION
  Report Type: Spontaneous
  Country: JP (occurrence: JP)
  Receive Date: 20220330
  Receipt Date: 20220330
  Transmission Date: 20220423
  Serious: Yes (Other)
  Sender: FDA-Public Use
  Company Number: JP-MLMSERVICE-20220318-3440626-1

PATIENT
  Age: 6 Decade
  Sex: Female

DRUGS (2)
  1. GEMCITABINE [Suspect]
     Active Substance: GEMCITABINE
     Indication: Peritoneal neoplasm
  2. DOCETAXEL [Suspect]
     Active Substance: DOCETAXEL
     Indication: Peritoneal neoplasm

REACTIONS (1)
  - Interstitial lung disease [Unknown]
